FAERS Safety Report 16166045 (Version 2)
Quarter: 2019Q2

REPORT INFORMATION
  Report Type: Spontaneous
  Country: DE (occurrence: DE)
  Receive Date: 20190406
  Receipt Date: 20190530
  Transmission Date: 20190711
  Serious: Yes (Other)
  Sender: FDA-Public Use
  Company Number: DE-AXELLIA-002381

PATIENT
  Age: 11 Year
  Sex: Male

DRUGS (4)
  1. VORICONAZOLE. [Suspect]
     Active Substance: VORICONAZOLE
     Indication: CANDIDA INFECTION
  2. CASPOFUNGIN [Suspect]
     Active Substance: CASPOFUNGIN
     Indication: CANDIDA INFECTION
  3. FLUCONAZOLE. [Suspect]
     Active Substance: FLUCONAZOLE
     Indication: CANDIDA INFECTION
     Dosage: UNK
  4. AMPHOTERICIN B/CHOLESTEROL [Suspect]
     Active Substance: AMPHOTERICIN B\CHOLESTEROL
     Indication: CANDIDA INFECTION
     Dosage: UNK

REACTIONS (2)
  - Multiple organ dysfunction syndrome [Recovered/Resolved]
  - Drug ineffective [Unknown]
